FAERS Safety Report 10179145 (Version 5)
Quarter: 2015Q1

REPORT INFORMATION
  Report Type: Report from Study
  Country: JP (occurrence: JP)
  Receive Date: 20140519
  Receipt Date: 20150122
  Transmission Date: 20150720
  Serious: Yes (Hospitalization)
  Sender: FDA-Public Use
  Company Number: PHHO2014JP006067

PATIENT
  Age: 62 Year
  Sex: Male
  Weight: 71 kg

DRUGS (17)
  1. MEK162 [Suspect]
     Active Substance: BINIMETINIB
     Dosage: 30 MG, QD
     Route: 048
     Dates: start: 20140212, end: 20140312
  2. PETROLATUM SALICYLATE [Concomitant]
     Indication: RASH
     Dosage: UNK
     Dates: start: 20140131
  3. CELESTAMINE [Concomitant]
     Active Substance: BETAMETHASONE\DEXCHLORPHENIRAMINE MALEATE
     Indication: RASH
     Dosage: 1 DF, QD
     Route: 048
     Dates: start: 20140301
  4. LOXOPROFEN [Suspect]
     Active Substance: LOXOPROFEN
     Indication: NECK PAIN
     Dosage: PRN
     Route: 048
     Dates: start: 20140313
  5. AMLODIPINE [Suspect]
     Active Substance: AMLODIPINE BESYLATE
     Dosage: 2.5 MG, QD
     Route: 048
     Dates: start: 20140411
  6. ACUATIM [Concomitant]
     Active Substance: NADIFLOXACIN
     Indication: RASH
     Dosage: UNK
     Dates: start: 20140120
  7. DERMOVATE [Concomitant]
     Active Substance: CLOBETASOL
     Indication: RASH
     Dosage: UNK
     Dates: start: 20140131
  8. MEK162 [Suspect]
     Active Substance: BINIMETINIB
     Dosage: 30 MG, QD
     Route: 048
     Dates: start: 20140328, end: 20140418
  9. ZADITEN [Suspect]
     Active Substance: KETOTIFEN FUMARATE
     Dosage: 1 MG, QD
     Route: 048
     Dates: start: 20140128
  10. NIVADIL [Concomitant]
     Active Substance: NILVADIPINE
     Indication: HYPERTENSION
     Dosage: 8 MG, QD
     Route: 048
     Dates: start: 20140128
  11. HIRUDOID [Concomitant]
     Active Substance: GLYCOSAMINOGLYCANS
     Indication: RASH
     Dosage: UNK
     Dates: start: 20140319
  12. MEK162 [Suspect]
     Active Substance: BINIMETINIB
     Indication: MALIGNANT MELANOMA
     Dosage: 45 MG, QD
     Route: 048
     Dates: start: 20140110, end: 20140128
  13. PURSENNID [Suspect]
     Active Substance: SENNOSIDES A AND B
     Indication: CONSTIPATION
     Dosage: PRN
     Route: 048
     Dates: start: 20140313
  14. MINOMYCIN [Concomitant]
     Active Substance: MINOCYCLINE HYDROCHLORIDE
     Indication: RASH
     Dosage: 200 MG, UNK
     Route: 048
     Dates: start: 20140123
  15. RENIVACE [Concomitant]
     Active Substance: ENALAPRIL
     Indication: HYPERTENSION
     Dosage: 10 MG, QD
     Route: 048
     Dates: start: 20140131
  16. ANTEBATE [Concomitant]
     Active Substance: BETAMETHASONE DIPROPIONATE
     Indication: RASH
     Dosage: UNK
     Dates: start: 20140120
  17. ALMETA [Concomitant]
     Active Substance: ALCLOMETASONE DIPROPIONATE
     Indication: RASH
     Dosage: UNK
     Dates: start: 20140221

REACTIONS (1)
  - Pneumonitis [Recovered/Resolved]

NARRATIVE: CASE EVENT DATE: 20140418
